FAERS Safety Report 8265554-6 (Version None)
Quarter: 2012Q2

REPORT INFORMATION
  Report Type: 
  Country: None (occurrence: None)
  Receive Date: 20120406
  Receipt Date: 20120328
  Transmission Date: 20120825
  Serious: No
  Sender: FDA-Public Use
  Company Number: US-B.I. PHARMACEUTICALS,INC./RIDGEFIELD-2012-BP-05853BP

PATIENT
  Sex: Female

DRUGS (11)
  1. THYROID TAB [Concomitant]
     Indication: THYROID DISORDER
     Dosage: 30 MG
     Route: 048
     Dates: start: 20120312
  2. CARAFATE [Concomitant]
     Indication: GASTRIC ULCER
     Dosage: 4 G
     Route: 048
  3. METFORMIN HCL [Concomitant]
     Indication: DIABETES MELLITUS
     Dosage: 2000 MG
     Route: 048
     Dates: start: 20020101
  4. METOPROLOL TARTRATE [Concomitant]
     Indication: ATRIAL FIBRILLATION
     Dosage: 50 MG
     Route: 048
     Dates: start: 20100101
  5. PRADAXA [Suspect]
     Indication: ATRIAL FIBRILLATION
     Dosage: 300 MG
     Route: 048
     Dates: start: 20120319, end: 20120321
  6. DEXILANT [Concomitant]
     Indication: GASTRIC ULCER
     Dosage: 60 MG
     Route: 048
     Dates: start: 20120203
  7. TRAZODONE HCL [Concomitant]
     Indication: INSOMNIA
     Dosage: 50 MG
     Route: 048
     Dates: start: 20100101
  8. LISINOPRIL [Concomitant]
     Indication: HYPERTENSION
     Dosage: 10 MG
     Route: 048
  9. NEURONTIN [Concomitant]
     Dosage: (CAPSULE) STRENGTH: 400 MG; DAILY DOSE: 800 MG
     Route: 048
     Dates: start: 20070101
  10. PRADAXA [Suspect]
     Dosage: 300 MG
     Route: 048
     Dates: start: 20120322
  11. NEURONTIN [Concomitant]
     Indication: NEUROPATHY PERIPHERAL
     Dosage: 1200 MG
     Route: 048
     Dates: start: 20070101

REACTIONS (3)
  - HAEMATOCHEZIA [None]
  - CHEST PAIN [None]
  - ARTHRALGIA [None]
